FAERS Safety Report 16781098 (Version 1)
Quarter: 2019Q3

REPORT INFORMATION
  Report Type: Spontaneous
  Country: US (occurrence: US)
  Receive Date: 20190717
  Receipt Date: 20190717
  Transmission Date: 20191005
  Serious: No
  Sender: FDA-Public Use
  Company Number: None

PATIENT

DRUGS (2)
  1. POTASSIUM CHLORIDE EXTENDED RELEASE [Suspect]
     Active Substance: POTASSIUM CHLORIDE
     Route: 048
  2. POTASSIUM CITRATE EXTENDED RELEASE [Suspect]
     Active Substance: POTASSIUM CITRATE
     Route: 048

REACTIONS (2)
  - Product name confusion [None]
  - Product dispensing error [None]
